FAERS Safety Report 23048242 (Version 2)
Quarter: 2023Q4

REPORT INFORMATION
  Report Type: Spontaneous
  Country: FR (occurrence: None)
  Receive Date: 20231010
  Receipt Date: 20231018
  Transmission Date: 20240110
  Serious: Yes (Death, Hospitalization, Other)
  Sender: FDA-Public Use
  Company Number: FR-Orion Corporation ORION PHARMA-TREX2023-0224

PATIENT
  Age: 83 Year
  Sex: Male
  Weight: 84.5 kg

DRUGS (22)
  1. METHOTREXATE SODIUM [Suspect]
     Active Substance: METHOTREXATE SODIUM
     Indication: Psoriatic arthropathy
     Dates: end: 20230706
  2. METHOTREXATE SODIUM [Suspect]
     Active Substance: METHOTREXATE SODIUM
     Indication: Rheumatoid arthritis
     Dates: start: 20230706, end: 20230713
  3. DULOXETINE [Concomitant]
     Active Substance: DULOXETINE
  4. OXAZEPAM [Concomitant]
     Active Substance: OXAZEPAM
  5. INSULIN NOS [Concomitant]
     Active Substance: INSULIN NOS
  6. PANTOPRAZOLE [Concomitant]
     Active Substance: PANTOPRAZOLE
  7. BISOPROLOL [Concomitant]
     Active Substance: BISOPROLOL\BISOPROLOL FUMARATE
  8. WARFARIN SODIUM [Concomitant]
     Active Substance: WARFARIN SODIUM
  9. FOLIC ACID [Concomitant]
     Active Substance: FOLIC ACID
  10. PREDNISONE [Concomitant]
     Active Substance: PREDNISONE
  11. DIGOXIN [Concomitant]
     Active Substance: DIGOXIN
     Dates: start: 20230711
  12. ALDACTONE [Concomitant]
     Active Substance: SPIRONOLACTONE
     Dates: start: 20230711
  13. AVODART [Concomitant]
     Active Substance: DUTASTERIDE
     Dates: start: 20230711
  14. FUROSEMIDE [Concomitant]
     Active Substance: FUROSEMIDE
     Dates: start: 20230711
  15. ALLOPURINOL [Concomitant]
     Active Substance: ALLOPURINOL
     Dates: start: 20230711
  16. POTASSIUM CHLORIDE [Concomitant]
     Active Substance: POTASSIUM CHLORIDE
     Dates: start: 20230711
  17. FERROUS SULFATE [Concomitant]
     Active Substance: FERROUS SULFATE
     Dates: start: 20230711
  18. DUPHALAC [Concomitant]
     Active Substance: LACTULOSE
     Dates: start: 20230711
  19. ACETAMINOPHEN [Concomitant]
     Active Substance: ACETAMINOPHEN
     Dates: start: 20230711
  20. AUGMENTIN [Concomitant]
     Active Substance: AMOXICILLIN\CLAVULANATE POTASSIUM
     Dates: start: 20230711
  21. COLCHICINE [Concomitant]
     Active Substance: COLCHICINE
     Dates: start: 20230711
  22. METFORMIN HYDROCHLORIDE [Concomitant]
     Active Substance: METFORMIN HYDROCHLORIDE
     Indication: Type 2 diabetes mellitus

REACTIONS (14)
  - Neutropenia [Fatal]
  - Inappropriate schedule of product administration [Fatal]
  - Product prescribing error [Fatal]
  - Cardiac failure [Fatal]
  - Infection [Fatal]
  - Agranulocytosis [Fatal]
  - Pancytopenia [Fatal]
  - Accidental overdose [Fatal]
  - Acute kidney injury [Not Recovered/Not Resolved]
  - Oral blood blister [Not Recovered/Not Resolved]
  - Mucosal inflammation [Not Recovered/Not Resolved]
  - Hepatic cytolysis [Not Recovered/Not Resolved]
  - Incorrect dose administered [Unknown]
  - Renal failure [Unknown]

NARRATIVE: CASE EVENT DATE: 20230701
